FAERS Safety Report 9874961 (Version 2)
Quarter: 2014Q1

REPORT INFORMATION
  Report Type: Spontaneous
  Country: US (occurrence: US)
  Receive Date: 20140206
  Receipt Date: 20140220
  Transmission Date: 20141002
  Serious: Yes (Death)
  Sender: FDA-Public Use
  Company Number: US-AMGEN-USASP2014007141

PATIENT
  Age: 75 Year
  Sex: Female
  Weight: 52.15 kg

DRUGS (8)
  1. PROLIA [Suspect]
     Indication: OSTEOPOROSIS POSTMENOPAUSAL
     Dosage: 60 MG, Q6MO
     Route: 065
     Dates: start: 20130806
  2. VITAMIN D                          /00107901/ [Concomitant]
     Route: 065
  3. LEVOTHYROXINE SODIUM [Concomitant]
     Dosage: 150 MUG, QD
     Route: 065
  4. ANASTROZOLE [Concomitant]
     Dosage: 1 MG, QD
     Route: 065
  5. XOPENEX HFA [Concomitant]
     Dosage: 45 MUG, 1 PUFF Q4 PRN
     Route: 065
  6. PACERONE [Concomitant]
     Dosage: 200 MG, QD
     Route: 065
  7. FUROSEMIDE                         /00032602/ [Concomitant]
     Dosage: 40 MG, QD
     Route: 065
  8. ASPIRIN [Concomitant]
     Dosage: 325 MG, QD
     Route: 065

REACTIONS (1)
  - Death [Fatal]
